FAERS Safety Report 6613874-0 (Version None)
Quarter: 2010Q1

REPORT INFORMATION
  Report Type: 
  Country: None (occurrence: None)
  Receive Date: 20100304
  Receipt Date: 20100224
  Transmission Date: 20100710
  Serious: Yes (Hospitalization)
  Sender: FDA-Public Use
  Company Number: A0845195A

PATIENT
  Sex: Male

DRUGS (13)
  1. PAXIL CR [Suspect]
     Indication: PANIC DISORDER
     Dosage: 25MG PER DAY
     Route: 048
  2. LIPITOR [Concomitant]
  3. CENTRUM SILVER [Concomitant]
  4. ENTERIC ASPIRIN [Concomitant]
  5. COLACE [Concomitant]
  6. BEANO [Concomitant]
  7. GAS X [Concomitant]
  8. TUMS [Concomitant]
  9. ACETAMINOPHEN [Concomitant]
  10. SUDAFED 12 HOUR [Concomitant]
  11. TYLENOL-500 [Concomitant]
  12. VITAMIN D [Concomitant]
  13. ZINC LOZENGES [Concomitant]

REACTIONS (29)
  - ABNORMAL DREAMS [None]
  - AGITATION [None]
  - AMNESIA [None]
  - BACK PAIN [None]
  - CHILLS [None]
  - CONSTIPATION [None]
  - DIZZINESS [None]
  - DRUG INEFFECTIVE [None]
  - ERECTILE DYSFUNCTION [None]
  - ERUCTATION [None]
  - EYE SWELLING [None]
  - FLATULENCE [None]
  - HALLUCINATION [None]
  - HYPERHIDROSIS [None]
  - HYPERSENSITIVITY [None]
  - LIP SWELLING [None]
  - NIGHT SWEATS [None]
  - PANIC ATTACK [None]
  - PARAESTHESIA [None]
  - PILOERECTION [None]
  - POLLAKIURIA [None]
  - PRURITUS [None]
  - RIB DEFORMITY [None]
  - SWOLLEN TONGUE [None]
  - TINNITUS [None]
  - TREMOR [None]
  - URTICARIA [None]
  - VISION BLURRED [None]
  - WEIGHT DECREASED [None]
